FAERS Safety Report 8474410-X (Version None)
Quarter: 2012Q2

REPORT INFORMATION
  Report Type: 
  Country: None (occurrence: None)
  Receive Date: 20120628
  Receipt Date: 20120621
  Transmission Date: 20120825
  Serious: Yes (Death)
  Sender: FDA-Public Use
  Company Number: PHEH2012US012355

PATIENT
  Sex: Male

DRUGS (5)
  1. ZOMETA [Suspect]
     Dosage: 4 MG/5 ML
  2. SANDOSTATIN [Concomitant]
  3. ZOMETA [Suspect]
     Indication: NEOPLASM MALIGNANT
     Dosage: 4 MG/5 ML
     Dates: start: 20120120
  4. AREDIA [Concomitant]
  5. ZOMETA [Suspect]
     Dosage: 4 MG/5 ML

REACTIONS (1)
  - DEATH [None]
